FAERS Safety Report 8582424 (Version 2)
Quarter: 2012Q4

REPORT INFORMATION
  Report Type: 
  Country: BR (occurrence: BR)
  Receive Date: 20120529
  Receipt Date: 20120828
  Transmission Date: 20130627
  Serious: Yes (Other)
  Sender: FDA-Public Use
  Company Number: PHHY2012BR044461

PATIENT
  Age: 73 Year
  Sex: Male

DRUGS (11)
  1. SANDOSTATIN LAR [Suspect]
     Indication: PANCREATIC CARCINOMA METASTATIC
     Dosage: 20 mg, QMO
     Dates: start: 200003
  2. SANDOSTATIN LAR [Suspect]
     Dosage: 30 mg, UNK
     Dates: start: 20050308, end: 200707
  3. SANDOSTATIN LAR [Suspect]
     Dosage: 60 mg, Every 28 days
     Dates: start: 20070806
  4. SANDOSTATIN LAR [Suspect]
     Dosage: 60 mg, Every 28 days
     Dates: start: 20090206
  5. CREON [Concomitant]
     Indication: STEATORRHOEA
  6. AVASTIN [Concomitant]
     Dosage: UNK UKN, UNK
  7. AVASTIN [Concomitant]
     Dosage: UNK UKN, UNK
     Dates: start: 20120117
  8. INTERFERON [Concomitant]
     Indication: HEPATIC NEOPLASM
     Dosage: UNK UKN, UNK
     Dates: start: 200011, end: 200304
  9. LUTETIUM -177 [Concomitant]
     Dosage: UNK UKN, UNK
     Dates: start: 200306, end: 200401
  10. BEVACIZUMAB [Concomitant]
     Dosage: 1 DF, TIW
     Dates: end: 20120117
  11. EYE DROPS [Concomitant]
     Indication: GLAUCOMA

REACTIONS (18)
  - Hypertrophy [Unknown]
  - Lymphadenopathy [Unknown]
  - Blood chromogranin A increased [Unknown]
  - Cholangitis [Unknown]
  - Lagophthalmos [Unknown]
  - Hepatic enzyme decreased [Unknown]
  - General physical health deterioration [Unknown]
  - Malignant neoplasm progression [Unknown]
  - Hepatic mass [Unknown]
  - Gamma-glutamyltransferase increased [Unknown]
  - Blood urea increased [Unknown]
  - Diarrhoea [Unknown]
  - Conjunctival hyperaemia [Unknown]
  - Flushing [Unknown]
  - Decreased appetite [Unknown]
  - Asthenia [Unknown]
  - Nausea [Unknown]
  - Hepatic lesion [Unknown]
